FAERS Safety Report 6692356-4 (Version None)
Quarter: 2010Q2

REPORT INFORMATION
  Report Type: 
  Country: None (occurrence: None)
  Receive Date: 20100419
  Receipt Date: 20100406
  Transmission Date: 20101027
  Serious: No
  Sender: FDA-Public Use
  Company Number: 009438

PATIENT

DRUGS (4)
  1. PLETAL [Suspect]
     Dosage: 100 MG, DAILY DOSE
     Route: 048
  2. PRAVASTATIN [Concomitant]
  3. LENDORMIN (BROTIZOLAM) TABLET [Concomitant]
  4. FUTHAN (NAFAMOSTAT MESILATE) INJECTION [Concomitant]

REACTIONS (2)
  - FEBRILE NEUTROPENIA [None]
  - INFECTION [None]
